FAERS Safety Report 9381455 (Version 2)
Quarter: 2013Q3

REPORT INFORMATION
  Report Type: Report from Study
  Country: ZA (occurrence: ZA)
  Receive Date: 20130703
  Receipt Date: 20130703
  Transmission Date: 20140515
  Serious: Yes (Hospitalization, Other)
  Sender: FDA-Public Use
  Company Number: ZA-JNJFOC-20120104670

PATIENT
  Age: 67 Year
  Sex: Female
  Weight: 83.4 kg

DRUGS (13)
  1. JNJ-28431754 [Suspect]
     Route: 048
  2. JNJ-28431754 [Suspect]
     Indication: TYPE 2 DIABETES MELLITUS
     Route: 048
     Dates: start: 20110324
  3. HUMULIN N [Concomitant]
     Indication: TYPE 2 DIABETES MELLITUS
     Dosage: AT NIGHT
  4. NOVORAPID [Concomitant]
     Indication: TYPE 2 DIABETES MELLITUS
  5. CARDURA XL [Concomitant]
     Indication: HYPERTENSION
     Route: 048
     Dates: start: 1990
  6. CARLOC [Concomitant]
     Indication: HYPERTENSION
     Route: 048
     Dates: start: 201002
  7. LASIX [Concomitant]
     Indication: HYPERTENSION
     Route: 048
     Dates: start: 201002
  8. SLOW K [Concomitant]
     Indication: MEDICAL DIET
     Route: 048
     Dates: start: 201002
  9. ELTROXIN [Concomitant]
     Indication: HYPOTHYROIDISM
     Route: 048
     Dates: start: 1990
  10. XYZAL [Concomitant]
     Indication: RHINITIS ALLERGIC
     Route: 048
     Dates: start: 2010
  11. FLIXONASE [Concomitant]
     Indication: RHINITIS ALLERGIC
     Route: 045
     Dates: start: 1990
  12. SERETIDE [Concomitant]
     Indication: ASTHMA
     Route: 055
     Dates: start: 1990
  13. VENTOLIN [Concomitant]
     Indication: ASTHMA
     Route: 048
     Dates: start: 1990

REACTIONS (1)
  - Hypoglycaemic coma [Recovered/Resolved]
